FAERS Safety Report 12613735 (Version 1)
Quarter: 2016Q3

REPORT INFORMATION
  Report Type: Report from Study
  Country: US (occurrence: US)
  Receive Date: 20160802
  Receipt Date: 20160802
  Transmission Date: 20161109
  Serious: Yes (Death, Other)
  Sender: FDA-Public Use
  Company Number: US-ROCHE-769784

PATIENT
  Age: 25 Year
  Sex: Female
  Weight: 46.2 kg

DRUGS (1)
  1. VISMODEGIB [Suspect]
     Active Substance: VISMODEGIB
     Indication: MEDULLOBLASTOMA
     Dosage: 150 MG, QD
     Route: 048

REACTIONS (4)
  - Syncope [Fatal]
  - Lymphocyte count decreased [Unknown]
  - Seizure [Fatal]
  - Death [Fatal]

NARRATIVE: CASE EVENT DATE: 20100203
